FAERS Safety Report 8075602-4 (Version None)
Quarter: 2012Q1

REPORT INFORMATION
  Report Type: 
  Country: None (occurrence: None)
  Receive Date: 20120127
  Receipt Date: 20120118
  Transmission Date: 20120608
  Serious: Yes (Other)
  Sender: FDA-Public Use
  Company Number: CA-JNJFOC-20120109126

PATIENT
  Sex: Male
  Weight: 85 kg

DRUGS (3)
  1. IMURAN [Concomitant]
     Route: 048
  2. REMICADE [Suspect]
     Indication: CROHN'S DISEASE
     Route: 042
     Dates: start: 20110222
  3. REMICADE [Suspect]
     Route: 042
     Dates: start: 20120118

REACTIONS (2)
  - MASS [None]
  - SKIN EXFOLIATION [None]
